FAERS Safety Report 8133811-X (Version None)
Quarter: 2012Q1

REPORT INFORMATION
  Report Type: 
  Country: None (occurrence: None)
  Receive Date: 20120213
  Receipt Date: 20120213
  Transmission Date: 20120608
  Serious: No
  Sender: FDA-Public Use
  Company Number: None

PATIENT
  Age: 59 Year
  Sex: Female
  Weight: 71.667 kg

DRUGS (2)
  1. PRAMOSONE LOTION [Suspect]
     Indication: RASH
     Dosage: LOTION
     Route: 065
     Dates: start: 20110302, end: 20110316
  2. PRAMOSONE LOTION [Suspect]
     Indication: EYELID DISORDER
     Dosage: LOTION
     Route: 065
     Dates: start: 20110302, end: 20110316

REACTIONS (2)
  - EYE PAIN [None]
  - VISION BLURRED [None]
